FAERS Safety Report 22329472 (Version 6)
Quarter: 2023Q4

REPORT INFORMATION
  Report Type: Other
  Country: CH (occurrence: None)
  Receive Date: 20230517
  Receipt Date: 20231218
  Transmission Date: 20240110
  Serious: Yes (Hospitalization)
  Sender: FDA-Public Use
  Company Number: CH-ROCHE-3349376

PATIENT
  Age: 1 Year
  Sex: Male
  Weight: 13 kg

DRUGS (25)
  1. EMICIZUMAB [Suspect]
     Active Substance: EMICIZUMAB
     Indication: Haemophilia A without inhibitors
     Route: 058
     Dates: start: 20220609, end: 20220630
  2. EMICIZUMAB [Suspect]
     Active Substance: EMICIZUMAB
     Route: 058
     Dates: start: 20220707, end: 20221215
  3. EMICIZUMAB [Suspect]
     Active Substance: EMICIZUMAB
     Route: 058
     Dates: start: 20221222
  4. HAEMOCTIN [Concomitant]
     Indication: Factor VIII deficiency
     Route: 040
     Dates: start: 20220527, end: 20220530
  5. HAEMOCTIN [Concomitant]
     Route: 040
     Dates: start: 20230403, end: 20230403
  6. HAEMOCTIN [Concomitant]
     Route: 040
     Dates: start: 20230403, end: 20230403
  7. HAEMOCTIN [Concomitant]
     Route: 040
     Dates: start: 20230404, end: 20230406
  8. HAEMOCTIN [Concomitant]
     Route: 040
     Dates: start: 20230407, end: 20230412
  9. HAEMOCTIN [Concomitant]
     Route: 040
     Dates: start: 20230413, end: 20230417
  10. AMOXICILLIN [Concomitant]
     Active Substance: AMOXICILLIN
     Route: 040
     Dates: start: 20220527, end: 20220530
  11. AMOXICILLIN [Concomitant]
     Active Substance: AMOXICILLIN
     Route: 048
     Dates: start: 20220530, end: 20220606
  12. DAFALGAN [Concomitant]
     Active Substance: ACETAMINOPHEN
     Indication: Pyrexia
     Route: 048
     Dates: start: 20220527, end: 20220530
  13. DAFALGAN [Concomitant]
     Active Substance: ACETAMINOPHEN
     Route: 054
     Dates: start: 20221028, end: 20221028
  14. DAFALGAN [Concomitant]
     Active Substance: ACETAMINOPHEN
     Route: 054
     Dates: start: 20230815, end: 20230815
  15. DAFALGAN [Concomitant]
     Active Substance: ACETAMINOPHEN
     Route: 054
     Dates: start: 20230816, end: 20230816
  16. METAMIZOL [Concomitant]
     Active Substance: METAMIZOLE SODIUM
     Route: 048
     Dates: start: 20220527, end: 20220530
  17. DORMICUM [Concomitant]
     Route: 045
     Dates: start: 20220527, end: 20220527
  18. DORMICUM [Concomitant]
     Route: 045
     Dates: start: 20220530, end: 20220530
  19. NALBUPHINE [Concomitant]
     Active Substance: NALBUPHINE
     Route: 040
     Dates: start: 20220527, end: 20220527
  20. TRANEXAMIC ACID [Concomitant]
     Active Substance: TRANEXAMIC ACID
     Route: 042
     Dates: start: 20230403, end: 20230417
  21. TRANEXAMIC ACID [Concomitant]
     Active Substance: TRANEXAMIC ACID
     Route: 048
     Dates: start: 20230403, end: 20230417
  22. METHIMAZOLE [Concomitant]
     Active Substance: METHIMAZOLE
     Indication: Pyrexia
     Route: 048
     Dates: start: 20221114, end: 20221114
  23. ACETAMINOPHEN [Concomitant]
     Active Substance: ACETAMINOPHEN
     Indication: Oral pain
     Route: 054
     Dates: start: 20230427, end: 20230427
  24. ACETAMINOPHEN [Concomitant]
     Active Substance: ACETAMINOPHEN
     Indication: Pyrexia
     Route: 054
     Dates: start: 20230909, end: 20230909
  25. NITUX [MORCLOFONE] [Concomitant]
     Indication: Cough
     Route: 048
     Dates: start: 20230910, end: 20230911

REACTIONS (4)
  - Pharyngeal haemorrhage [Recovered/Resolved]
  - Bronchitis [Recovered/Resolved]
  - Ear infection [Recovered/Resolved]
  - Conjunctivitis [Recovered/Resolved]

NARRATIVE: CASE EVENT DATE: 20221223
